FAERS Safety Report 4842095-7 (Version None)
Quarter: 2005Q4

REPORT INFORMATION
  Report Type: 
  Country: None (occurrence: None)
  Receive Date: 20051130
  Receipt Date: 20051028
  Transmission Date: 20060501
  Serious: Yes (Other)
  Sender: FDA-Public Use
  Company Number: GB-ABBOTT-05P-167-0316325-00

PATIENT
  Age: 35 Year
  Sex: Male

DRUGS (3)
  1. NORVIR [Suspect]
     Indication: DRUG USE FOR UNKNOWN INDICATION
     Route: 048
     Dates: start: 20050401, end: 20051001
  2. ATAZANAVIR [Concomitant]
     Indication: HIV INFECTION
     Route: 048
     Dates: end: 20051001
  3. TENOFOVIR [Concomitant]
     Indication: HIV INFECTION
     Route: 048

REACTIONS (3)
  - PYREXIA [None]
  - RASH [None]
  - RHABDOMYOLYSIS [None]
